FAERS Safety Report 11562037 (Version 1)
Quarter: 2015Q3

REPORT INFORMATION
  Report Type: Spontaneous
  Country: US (occurrence: US)
  Receive Date: 20150928
  Receipt Date: 20150928
  Transmission Date: 20151125
  Serious: Yes (Death)
  Sender: FDA-Public Use
  Company Number: US-ABBVIE-15P-163-1469384-00

PATIENT
  Sex: Male

DRUGS (1)
  1. ANDROGEL [Suspect]
     Active Substance: TESTOSTERONE
     Indication: ANDROGEN REPLACEMENT THERAPY
     Route: 061

REACTIONS (10)
  - Pain [Unknown]
  - Economic problem [Unknown]
  - Deformity [Unknown]
  - Injury [Unknown]
  - Impaired work ability [Unknown]
  - Disability [Unknown]
  - Physical disability [Unknown]
  - Myocardial infarction [Fatal]
  - Anxiety [Unknown]
  - Emotional disorder [Unknown]
